FAERS Safety Report 15374468 (Version 2)
Quarter: 2018Q3

REPORT INFORMATION
  Report Type: Spontaneous
  Country: US (occurrence: US)
  Receive Date: 20180912
  Receipt Date: 20180917
  Transmission Date: 20181010
  Serious: No
  Sender: FDA-Public Use
  Company Number: US-ELI_LILLY_AND_COMPANY-US201809003252

PATIENT
  Age: 46 Year
  Sex: Male

DRUGS (5)
  1. TRULICITY [Suspect]
     Active Substance: DULAGLUTIDE
     Indication: TYPE 2 DIABETES MELLITUS
     Dosage: 1.5 MG, UNKNOWN
     Route: 058
     Dates: start: 2015
  2. TRULICITY [Suspect]
     Active Substance: DULAGLUTIDE
     Dosage: 1.5 MG, UNKNOWN
     Route: 058
  3. METFORMIN [Concomitant]
     Active Substance: METFORMIN HYDROCHLORIDE
     Indication: TYPE 2 DIABETES MELLITUS
     Dosage: 1000 MG, BID
     Route: 065
  4. LANTUS [Concomitant]
     Active Substance: INSULIN GLARGINE
     Indication: TYPE 2 DIABETES MELLITUS
     Dosage: 50 U, DAILY
     Route: 065
  5. JARDIANCE [Concomitant]
     Active Substance: EMPAGLIFLOZIN
     Indication: TYPE 2 DIABETES MELLITUS
     Dosage: 25 MG, DAILY
     Route: 065

REACTIONS (2)
  - Blood glucose increased [Not Recovered/Not Resolved]
  - Accidental underdose [Not Recovered/Not Resolved]

NARRATIVE: CASE EVENT DATE: 20180907
